FAERS Safety Report 26131278 (Version 1)
Quarter: 2025Q4

REPORT INFORMATION
  Report Type: Spontaneous
  Country: CN (occurrence: CN)
  Receive Date: 20251208
  Receipt Date: 20251208
  Transmission Date: 20260117
  Serious: Yes (Other)
  Sender: BAYER HEALTHCARE PHARMACEUTICALS INC.
  Company Number: CN-BAYER-2025A161425

PATIENT
  Age: 76 Year
  Sex: Male

DRUGS (1)
  1. AVELOX [Suspect]
     Active Substance: MOXIFLOXACIN HYDROCHLORIDE
     Indication: Pneumonia
     Dosage: 0.4 G, QD
     Route: 041
     Dates: start: 20251127, end: 20251129

REACTIONS (3)
  - Hallucination, visual [Recovering/Resolving]
  - Depressed level of consciousness [Recovering/Resolving]
  - Dysphoria [None]

NARRATIVE: CASE EVENT DATE: 20250101
